FAERS Safety Report 24254691 (Version 4)
Quarter: 2024Q4

REPORT INFORMATION
  Report Type: Report from Study
  Country: CA (occurrence: CA)
  Receive Date: 20240827
  Receipt Date: 20241212
  Transmission Date: 20250115
  Serious: Yes (Hospitalization, Other)
  Sender: TAKEDA
  Company Number: CA-TAKEDA-CA202023853

PATIENT
  Sex: Male

DRUGS (13)
  1. TEDUGLUTIDE [Suspect]
     Active Substance: TEDUGLUTIDE
     Indication: Short-bowel syndrome
     Dosage: 3.3 MILLIGRAM, QD
     Dates: start: 20160222
  2. TEDUGLUTIDE [Suspect]
     Active Substance: TEDUGLUTIDE
     Dosage: 3.07 MILLIGRAM, QD
  3. TEDUGLUTIDE [Suspect]
     Active Substance: TEDUGLUTIDE
     Dosage: 3.1 MILLIGRAM, QD
  4. TEDUGLUTIDE [Suspect]
     Active Substance: TEDUGLUTIDE
     Dosage: 3.07 MILLIGRAM, QD
  5. TEDUGLUTIDE [Suspect]
     Active Substance: TEDUGLUTIDE
     Dosage: UNK UNK, QD
  6. TEDUGLUTIDE [Suspect]
     Active Substance: TEDUGLUTIDE
     Dosage: 3.1 MILLIGRAM, QD
  7. TEDUGLUTIDE [Suspect]
     Active Substance: TEDUGLUTIDE
     Dosage: 3.1 MILLIGRAM, QD
  8. WARFARIN [Concomitant]
     Active Substance: WARFARIN
     Dosage: UNK
  9. TRAMADOL [Concomitant]
     Active Substance: TRAMADOL
     Indication: Back pain
     Dosage: UNK
  10. URSODIOL [Concomitant]
     Active Substance: URSODIOL
     Indication: Prophylaxis
     Dosage: UNK, UNK QD
  11. TPN [Concomitant]
     Active Substance: AMINO ACIDS\DEXTROSE\ELECTROLYTES NOS\SOYBEAN OIL
     Dosage: 2000 MILLILITER, 4/WEEK
     Dates: start: 201602
  12. TPN [Concomitant]
     Active Substance: AMINO ACIDS\DEXTROSE\ELECTROLYTES NOS\SOYBEAN OIL
     Dosage: 2300 MILLILITER, 4/WEEK
     Dates: start: 20230623
  13. TPN [Concomitant]
     Active Substance: AMINO ACIDS\DEXTROSE\ELECTROLYTES NOS\SOYBEAN OIL
     Dosage: 2000 MILLILITER, 4/WEEK
     Dates: start: 20240223

REACTIONS (19)
  - Sepsis [Recovering/Resolving]
  - Hypophagia [Recovering/Resolving]
  - Urine output increased [Recovering/Resolving]
  - Infrequent bowel movements [Recovering/Resolving]
  - Road traffic accident [Unknown]
  - Product dose omission issue [Unknown]
  - Weight decreased [Unknown]
  - Malaise [Recovering/Resolving]
  - Dehydration [Unknown]
  - Abdominal discomfort [Unknown]
  - Hyperphagia [Unknown]
  - Diarrhoea [Unknown]
  - Weight gain poor [Unknown]
  - Increased appetite [Unknown]
  - Initial insomnia [Unknown]
  - Illness [Unknown]
  - Frequent bowel movements [Unknown]
  - Gastrointestinal motility disorder [Unknown]
  - Pain [Unknown]
